FAERS Safety Report 24370233 (Version 1)
Quarter: 2024Q3

REPORT INFORMATION
  Report Type: Report from Study
  Country: US (occurrence: US)
  Receive Date: 20240927
  Receipt Date: 20240927
  Transmission Date: 20241017
  Serious: No
  Sender: ROCHE
  Company Number: US-ROCHE-3567398

PATIENT
  Age: 61 Year
  Sex: Female

DRUGS (4)
  1. LUCENTIS [Suspect]
     Active Substance: RANIBIZUMAB
     Indication: Neovascular age-related macular degeneration
     Dosage: DATE OF SERVICE: 20/FEB/2024
     Route: 065
  2. LUCENTIS [Suspect]
     Active Substance: RANIBIZUMAB
     Indication: Choroidal neovascularisation
  3. LUCENTIS [Suspect]
     Active Substance: RANIBIZUMAB
     Indication: Retinal vein occlusion
  4. LUCENTIS [Suspect]
     Active Substance: RANIBIZUMAB
     Indication: Macular oedema

REACTIONS (2)
  - Wrong product administered [Unknown]
  - No adverse event [Unknown]
